FAERS Safety Report 11770833 (Version 1)
Quarter: 2015Q4

REPORT INFORMATION
  Report Type: Spontaneous
  Country: GR (occurrence: GR)
  Receive Date: 20151123
  Receipt Date: 20151123
  Transmission Date: 20160304
  Serious: Yes (Death)
  Sender: FDA-Public Use
  Company Number: GR-009507513-1511GRC008588

PATIENT
  Age: 91 Year
  Sex: Female

DRUGS (1)
  1. INEGY [Suspect]
     Active Substance: EZETIMIBE\SIMVASTATIN
     Indication: DYSLIPIDAEMIA
     Dosage: 10/40MG TABLET, 1 TABLET EVERY DAY
     Route: 048
     Dates: start: 201111

REACTIONS (1)
  - Death [Fatal]
